FAERS Safety Report 5285600-1 (Version None)
Quarter: 2007Q1

REPORT INFORMATION
  Report Type: 
  Country: None (occurrence: None)
  Receive Date: 20070116
  Receipt Date: 20061128
  Transmission Date: 20070707
  Serious: No
  Sender: FDA-Public Use
  Company Number: 2006SP004182

PATIENT
  Age: 88 Year
  Sex: Female
  Weight: 57.1532 kg

DRUGS (1)
  1. LUNESTA [Suspect]
     Indication: INSOMNIA
     Dosage: 3 MG; HS; ORAL
     Route: 048
     Dates: start: 20061127, end: 20061127

REACTIONS (2)
  - DIZZINESS [None]
  - HYPOAESTHESIA [None]
